FAERS Safety Report 4741295-4 (Version None)
Quarter: 2005Q3

REPORT INFORMATION
  Report Type: 
  Country: None (occurrence: None)
  Receive Date: 20050808
  Receipt Date: 20050801
  Transmission Date: 20060218
  Serious: Yes (Other)
  Sender: FDA-Public Use
  Company Number: 2005109494

PATIENT
  Sex: Male

DRUGS (2)
  1. DILANTIN [Suspect]
     Indication: CONVULSION
  2. ZOLOFT [Concomitant]

REACTIONS (6)
  - ANTICONVULSANT DRUG LEVEL DECREASED [None]
  - CONTUSION [None]
  - CONVULSION [None]
  - DISEASE RECURRENCE [None]
  - FALL [None]
  - SPEECH DISORDER [None]
